FAERS Safety Report 6045783-2 (Version None)
Quarter: 2009Q1

REPORT INFORMATION
  Report Type: 
  Country: None (occurrence: None)
  Receive Date: 20090121
  Receipt Date: 20090114
  Transmission Date: 20090719
  Serious: Yes (Other)
  Sender: FDA-Public Use
  Company Number: US-JNJFOC-20090100963

PATIENT
  Sex: Female

DRUGS (4)
  1. TYLENOL (CAPLET) [Suspect]
     Route: 048
  2. TYLENOL (CAPLET) [Suspect]
     Indication: FIBROMYALGIA
     Route: 048
  3. SYNTHROID [Concomitant]
     Indication: THYROID DISORDER
  4. LEXAPRO [Concomitant]

REACTIONS (1)
  - BLOOD PRESSURE INCREASED [None]
